FAERS Safety Report 10070989 (Version 2)
Quarter: 2014Q2

REPORT INFORMATION
  Report Type: Spontaneous
  Country: SY (occurrence: SY)
  Receive Date: 20140410
  Receipt Date: 20140417
  Transmission Date: 20141212
  Serious: Yes (Hospitalization)
  Sender: FDA-Public Use
  Company Number: SY-GLAXOSMITHKLINE-B0983243A

PATIENT
  Age: 50 Year
  Sex: Male

DRUGS (1)
  1. REVOLADE [Suspect]
     Indication: IMMUNE THROMBOCYTOPENIC PURPURA
     Dosage: 50MG PER DAY
     Route: 048
     Dates: start: 20140326, end: 20140330

REACTIONS (3)
  - Epilepsy [Recovered/Resolved]
  - Disorientation [Unknown]
  - Somnolence [Unknown]
